FAERS Safety Report 5003001-8 (Version None)
Quarter: 2006Q2

REPORT INFORMATION
  Report Type: 
  Country: None (occurrence: None)
  Receive Date: 20060516
  Receipt Date: 20051019
  Transmission Date: 20061013
  Serious: Yes (Hospitalization)
  Sender: FDA-Public Use
  Company Number: US-MERCK-0510USA08356

PATIENT
  Age: 53 Year
  Sex: Male
  Weight: 83 kg

DRUGS (4)
  1. VIOXX [Suspect]
     Indication: BACK PAIN
     Route: 048
     Dates: start: 20010101, end: 20020101
  2. TYLENOL (CAPLET) [Concomitant]
     Indication: PAIN
     Route: 065
  3. DIOVAN [Concomitant]
     Indication: HYPERTENSION
     Route: 065
  4. NEXIUM [Concomitant]
     Indication: DYSPEPSIA
     Route: 065

REACTIONS (3)
  - HERNIA [None]
  - HERNIA REPAIR [None]
  - PULMONARY EMBOLISM [None]
